FAERS Safety Report 25374603 (Version 1)
Quarter: 2025Q2

REPORT INFORMATION
  Report Type: Spontaneous
  Country: DE (occurrence: DE)
  Receive Date: 20250529
  Receipt Date: 20250529
  Transmission Date: 20250716
  Serious: Yes (Other)
  Sender: MYLAN
  Company Number: DE-SANDOZ-SDZ2025DE019957

PATIENT
  Sex: Male
  Weight: 102 kg

DRUGS (16)
  1. ATORVASTATIN [Suspect]
     Active Substance: ATORVASTATIN
     Indication: Hypercholesterolaemia
     Dosage: 80 MILLIGRAM, QD
     Dates: start: 20240911, end: 20241204
  2. ATORVASTATIN [Suspect]
     Active Substance: ATORVASTATIN
     Dosage: 80 MILLIGRAM, QD
     Dates: start: 20240911, end: 20241204
  3. ATORVASTATIN [Suspect]
     Active Substance: ATORVASTATIN
     Dosage: 80 MILLIGRAM, QD
     Route: 048
     Dates: start: 20240911, end: 20241204
  4. ATORVASTATIN [Suspect]
     Active Substance: ATORVASTATIN
     Dosage: 80 MILLIGRAM, QD
     Route: 048
     Dates: start: 20240911, end: 20241204
  5. ATORVASTATIN [Suspect]
     Active Substance: ATORVASTATIN
     Dosage: 40 MILLIGRAM, QD
     Dates: start: 20241217
  6. ATORVASTATIN [Suspect]
     Active Substance: ATORVASTATIN
     Dosage: 40 MILLIGRAM, QD
     Dates: start: 20241217
  7. ATORVASTATIN [Suspect]
     Active Substance: ATORVASTATIN
     Dosage: 40 MILLIGRAM, QD
     Route: 048
     Dates: start: 20241217
  8. ATORVASTATIN [Suspect]
     Active Substance: ATORVASTATIN
     Dosage: 40 MILLIGRAM, QD
     Route: 048
     Dates: start: 20241217
  9. EZETIMIBE [Suspect]
     Active Substance: EZETIMIBE
     Indication: Hypercholesterolaemia
     Dosage: 10 MILLIGRAM, QD
     Dates: start: 20241217
  10. EZETIMIBE [Suspect]
     Active Substance: EZETIMIBE
     Dosage: 10 MILLIGRAM, QD
     Route: 048
     Dates: start: 20241217
  11. EZETIMIBE [Suspect]
     Active Substance: EZETIMIBE
     Dosage: 10 MILLIGRAM, QD
     Route: 048
     Dates: start: 20241217
  12. EZETIMIBE [Suspect]
     Active Substance: EZETIMIBE
     Dosage: 10 MILLIGRAM, QD
     Dates: start: 20241217
  13. INCLISIRAN [Suspect]
     Active Substance: INCLISIRAN
     Indication: Hypercholesterolaemia
     Dates: start: 20241024, end: 20241204
  14. INCLISIRAN [Suspect]
     Active Substance: INCLISIRAN
     Route: 048
     Dates: start: 20241024, end: 20241204
  15. INCLISIRAN [Suspect]
     Active Substance: INCLISIRAN
     Route: 048
     Dates: start: 20241024, end: 20241204
  16. INCLISIRAN [Suspect]
     Active Substance: INCLISIRAN
     Dates: start: 20241024, end: 20241204

REACTIONS (3)
  - Myopathy [Recovered/Resolved]
  - Hyperkalaemia [Recovered/Resolved]
  - Hepatic enzyme increased [Recovered/Resolved]

NARRATIVE: CASE EVENT DATE: 20241202
